FAERS Safety Report 6427852-8 (Version None)
Quarter: 2009Q4

REPORT INFORMATION
  Report Type: 
  Country: None (occurrence: None)
  Receive Date: 20091104
  Receipt Date: 20091104
  Transmission Date: 20100525
  Serious: No
  Sender: FDA-Public Use
  Company Number: None

PATIENT

DRUGS (1)
  1. BUPIVACAINE HCL [Suspect]
     Indication: SPINAL ANAESTHESIA
     Dates: start: 20091102, end: 20091102

REACTIONS (1)
  - DRUG INEFFECTIVE [None]
